FAERS Safety Report 8125940 (Version 3)
Quarter: 2013Q2

REPORT INFORMATION
  Report Type: Spontaneous
  Country: US (occurrence: US)
  Receive Date: 20110908
  Receipt Date: 20130514
  Transmission Date: 20140414
  Serious: No
  Sender: FDA-Public Use
  Company Number: US-B.I. PHARMACEUTICALS,INC./RIDGEFIELD-2011-BP-20903BP

PATIENT
  Age: 70 Year
  Sex: Female
  Weight: 101.15 kg

DRUGS (16)
  1. SPIRIVA HANDIHALER [Suspect]
     Indication: CHRONIC OBSTRUCTIVE PULMONARY DISEASE
     Dosage: 18 MCG
     Route: 055
     Dates: start: 20110819
  2. SPIRIVA HANDIHALER [Suspect]
     Dosage: 18 MCG
     Route: 055
     Dates: start: 20120406, end: 20130304
  3. ULTRAM [Concomitant]
     Indication: PAIN
     Dosage: 50 MG
     Route: 048
  4. ALBUTEROL NEB [Concomitant]
     Indication: CHRONIC OBSTRUCTIVE PULMONARY DISEASE
     Route: 055
  5. COMBIVENT [Concomitant]
     Indication: CHRONIC OBSTRUCTIVE PULMONARY DISEASE
     Route: 055
  6. SYMBICORT [Concomitant]
     Indication: CHRONIC OBSTRUCTIVE PULMONARY DISEASE
     Route: 055
     Dates: start: 2008
  7. SYMBICORT [Concomitant]
     Indication: ASTHMA
  8. SYMBICORT [Concomitant]
     Indication: BRONCHITIS
  9. SOMA [Concomitant]
     Indication: PAIN
     Route: 048
  10. METFORMIN [Concomitant]
     Indication: DIABETES MELLITUS
     Dosage: 1000 MG
     Route: 048
  11. DITROPAN [Concomitant]
     Indication: BLADDER SPASM
     Dosage: 5 MG
     Route: 048
  12. DESOLAX [Concomitant]
     Route: 048
  13. LORATADINE [Concomitant]
     Indication: SEASONAL ALLERGY
     Route: 048
  14. CENTRUM SILVER VITAMIN [Concomitant]
     Indication: SUPPLEMENTATION THERAPY
     Route: 048
  15. TYLENOL [Concomitant]
     Indication: PAIN
     Route: 048
  16. OXYGEN [Concomitant]

REACTIONS (10)
  - Oropharyngeal pain [Not Recovered/Not Resolved]
  - Dysphagia [Not Recovered/Not Resolved]
  - Pharyngeal oedema [Not Recovered/Not Resolved]
  - Sinusitis [Not Recovered/Not Resolved]
  - Nasal congestion [Not Recovered/Not Resolved]
  - Abdominal pain upper [Not Recovered/Not Resolved]
  - Diarrhoea [Not Recovered/Not Resolved]
  - Chest pain [Recovered/Resolved]
  - Dry mouth [Not Recovered/Not Resolved]
  - Pharyngeal oedema [Not Recovered/Not Resolved]
